FAERS Safety Report 9104026 (Version 2)
Quarter: 2013Q1

REPORT INFORMATION
  Report Type: Spontaneous
  Country: US (occurrence: US)
  Receive Date: 20130219
  Receipt Date: 20130326
  Transmission Date: 20140127
  Serious: No
  Sender: FDA-Public Use
  Company Number: US-PFIZER INC-2013060373

PATIENT
  Age: 59 Year
  Sex: Male
  Weight: 97 kg

DRUGS (8)
  1. LYRICA [Suspect]
     Indication: BACK PAIN
     Dosage: 75 MG, EVERY 12 HOURS
     Route: 048
     Dates: start: 20120813, end: 201209
  2. LYRICA [Suspect]
     Indication: LUMBAR RADICULOPATHY
     Dosage: 100 MG, EVERY 12 HOURS
     Route: 048
     Dates: start: 201209, end: 201302
  3. LYRICA [Suspect]
     Indication: BACK PAIN
     Dosage: 50 MG, EVERY 12 HOURS
     Route: 048
     Dates: start: 201302, end: 20130306
  4. MS CONTIN [Concomitant]
     Indication: BREAKTHROUGH PAIN
     Dosage: 15 MG, 2X/DAY (EVERY 12 HOURS)
     Route: 048
  5. MORPHINE SULFATE [Concomitant]
     Indication: BREAKTHROUGH PAIN
     Dosage: 15 MG, 3-4 TIMES DAILY
     Route: 048
  6. FLEXERIL [Concomitant]
     Indication: MUSCLE RELAXANT THERAPY
     Dosage: 10 MG, 2X/DAY
  7. FLEXERIL [Concomitant]
     Dosage: 10 MG, 2X/DAY
  8. SENOKOT [Concomitant]
     Dosage: 5 (UNIT UNKNOWN), EVERY DAY

REACTIONS (4)
  - Oedema peripheral [Not Recovered/Not Resolved]
  - Weight increased [Unknown]
  - Withdrawal syndrome [Not Recovered/Not Resolved]
  - Arthropathy [Unknown]
